FAERS Safety Report 20694588 (Version 3)
Quarter: 2022Q2

REPORT INFORMATION
  Report Type: Spontaneous
  Country: US (occurrence: US)
  Receive Date: 20220411
  Receipt Date: 20220520
  Transmission Date: 20220721
  Serious: Yes (Hospitalization)
  Sender: FDA-Public Use
  Company Number: US-SA-SAC20220218000829

PATIENT
  Age: 72 Year
  Sex: Female

DRUGS (24)
  1. DUPIXENT [Suspect]
     Active Substance: DUPILUMAB
     Indication: Asthma
     Dosage: 300 MG, QOW
     Route: 058
     Dates: start: 20190920
  2. PREDNISONE [Concomitant]
     Active Substance: PREDNISONE
     Indication: Asthma
     Dosage: 10 MG
  3. ALBUTEROL [Concomitant]
     Active Substance: ALBUTEROL
     Dosage: 81MG
  4. ASPIRIN [Concomitant]
     Active Substance: ASPIRIN
     Dosage: 81 MG
  5. BREO ELLIPTA [Concomitant]
     Active Substance: FLUTICASONE FUROATE\VILANTEROL TRIFENATATE
     Dosage: 600 MG
  6. INH [Concomitant]
     Active Substance: ISONIAZID
  7. CALCIUM [Concomitant]
     Active Substance: CALCIUM
     Dosage: 32 MG
  8. CANDESARTAN [Concomitant]
     Active Substance: CANDESARTAN
     Dosage: 32 MG
  9. CANDESARTAN [Concomitant]
     Active Substance: CANDESARTAN
     Dosage: 50 MG
  10. ELIQUIS [Concomitant]
     Active Substance: APIXABAN
     Dosage: 5 MG
  11. ELIQUIS [Concomitant]
     Active Substance: APIXABAN
     Dosage: 300 MG
  12. GABAPENTIN [Concomitant]
     Active Substance: GABAPENTIN
     Dosage: 300MG
  13. GENTAMICIN [Concomitant]
     Active Substance: GENTAMICIN
     Dosage: 300 MG
  14. VITAMIN D NOS [Concomitant]
     Active Substance: VITAMIN D NOS
     Dosage: 28 MG
  15. MELATONIN [Concomitant]
     Active Substance: MELATONIN
     Dosage: 1200 MG
  16. MUCINEX [Concomitant]
     Active Substance: GUAIFENESIN
     Dosage: 40 MG
  17. OMEPRAZOLE [Concomitant]
     Active Substance: OMEPRAZOLE
     Dosage: 10 MG
  18. PROAIR HFA [Concomitant]
     Active Substance: ALBUTEROL SULFATE
     Indication: Asthma
     Dosage: 50 MG
  19. TRAMADOL HCL [Concomitant]
     Active Substance: TRAMADOL HYDROCHLORIDE
     Dosage: 50
  20. ZANTAC [Concomitant]
     Active Substance: RANITIDINE HYDROCHLORIDE
     Dosage: 4 MG
  21. ZOFRAN [Concomitant]
     Active Substance: ONDANSETRON HYDROCHLORIDE
     Dosage: 4 MG
  22. VIT B12 + FOLIC AC [Concomitant]
  23. IRON [Concomitant]
     Active Substance: IRON
     Dosage: 28 MG
  24. DOXYCYCLINE HYCLATE [Concomitant]
     Active Substance: DOXYCYCLINE HYCLATE

REACTIONS (5)
  - Hospitalisation [Unknown]
  - Asthma [Unknown]
  - Impaired quality of life [Not Recovered/Not Resolved]
  - Surgery [Unknown]
  - Drug ineffective [Unknown]

NARRATIVE: CASE EVENT DATE: 20220317
